FAERS Safety Report 22627394 (Version 4)
Quarter: 2023Q4

REPORT INFORMATION
  Report Type: Spontaneous
  Country: GB (occurrence: None)
  Receive Date: 20230622
  Receipt Date: 20231215
  Transmission Date: 20240109
  Serious: Yes (Other)
  Sender: FDA-Public Use
  Company Number: GB-ROCHE-3257081

PATIENT
  Sex: Female
  Weight: 79.7 kg

DRUGS (12)
  1. TOCILIZUMAB [Suspect]
     Active Substance: TOCILIZUMAB
     Indication: Rheumatoid arthritis
     Route: 058
     Dates: start: 2022
  2. TOCILIZUMAB [Suspect]
     Active Substance: TOCILIZUMAB
     Indication: Psoriasis
     Route: 058
     Dates: start: 202211, end: 20230223
  3. TOCILIZUMAB [Suspect]
     Active Substance: TOCILIZUMAB
     Route: 058
     Dates: start: 20221024, end: 20230213
  4. LEFLUNOMIDE [Suspect]
     Active Substance: LEFLUNOMIDE
     Indication: Rheumatoid arthritis
     Route: 048
     Dates: start: 201408, end: 20230223
  5. LEFLUNOMIDE [Suspect]
     Active Substance: LEFLUNOMIDE
     Route: 048
     Dates: start: 20140620, end: 20230213
  6. LEVOTHYROXINE [Concomitant]
     Active Substance: LEVOTHYROXINE
  7. FOLIC ACID [Concomitant]
     Active Substance: FOLIC ACID
  8. BUMETANIDE [Concomitant]
     Active Substance: BUMETANIDE
  9. RAMIPRIL [Concomitant]
     Active Substance: RAMIPRIL
  10. OMEPRAZOLE [Concomitant]
     Active Substance: OMEPRAZOLE
  11. HYDROXOCOBALAMIN [Concomitant]
     Active Substance: HYDROXOCOBALAMIN
  12. DICLOFENAC [Concomitant]
     Active Substance: DICLOFENAC
     Indication: Pain

REACTIONS (6)
  - Lower respiratory tract infection [Unknown]
  - Skin ulcer [Recovered/Resolved]
  - Oedema [Unknown]
  - Cellulitis [Unknown]
  - Wound [Unknown]
  - Impaired healing [Unknown]

NARRATIVE: CASE EVENT DATE: 20190101
